FAERS Safety Report 9514325 (Version 1)
Quarter: 2013Q3

REPORT INFORMATION
  Report Type: Spontaneous
  Country: US (occurrence: US)
  Receive Date: 20130911
  Receipt Date: 20130911
  Transmission Date: 20140515
  Serious: Yes (Hospitalization, Other)
  Sender: FDA-Public Use
  Company Number: US-JNJFOC-20130900724

PATIENT
  Age: 14 Year
  Sex: Male

DRUGS (2)
  1. TYLENOL UNSPECIFIED [Suspect]
     Route: 065
  2. TYLENOL UNSPECIFIED [Suspect]
     Indication: MIGRAINE
     Route: 065

REACTIONS (2)
  - Product label issue [Unknown]
  - Accidental overdose [Unknown]
